FAERS Safety Report 9343581 (Version 1)
Quarter: 2013Q2

REPORT INFORMATION
  Report Type: Spontaneous
  Country: US (occurrence: US)
  Receive Date: 20130612
  Receipt Date: 20130612
  Transmission Date: 20140414
  Serious: No
  Sender: FDA-Public Use
  Company Number: US-009507513-1305USA016216

PATIENT
  Sex: Female

DRUGS (2)
  1. PEG-INTRON [Suspect]
     Indication: HEPATITIS C
     Dosage: REDIPEN
     Dates: start: 20130413
  2. REBETOL [Suspect]
     Indication: HEPATITIS C
     Dosage: REDIPEN
     Route: 048
     Dates: start: 20130413

REACTIONS (2)
  - Pain [Unknown]
  - Rash generalised [Unknown]
